FAERS Safety Report 12264679 (Version 6)
Quarter: 2018Q2

REPORT INFORMATION
  Report Type: Spontaneous
  Country: BR (occurrence: BR)
  Receive Date: 20160413
  Receipt Date: 20180413
  Transmission Date: 20180711
  Serious: Yes (Other)
  Sender: FDA-Public Use
  Company Number: BR-PFIZER INC-2016202616

PATIENT
  Age: 38 Year
  Sex: Male
  Weight: 92 kg

DRUGS (8)
  1. GEODON [Suspect]
     Active Substance: ZIPRASIDONE HYDROCHLORIDE\ZIPRASIDONE MESYLATE
     Indication: SCHIZOPHRENIA
     Dosage: 40 MG, 1X/DAY
     Route: 048
  2. FLUOXETINE [Concomitant]
     Active Substance: FLUOXETINE HYDROCHLORIDE
     Dosage: UNK
     Dates: start: 2011
  3. CLONAZEPAM. [Concomitant]
     Active Substance: CLONAZEPAM
     Dosage: UNK
     Dates: start: 2011
  4. CLOZAPINE. [Concomitant]
     Active Substance: CLOZAPINE
     Dosage: UNK
     Dates: start: 2017
  5. BIPERIDEN [Concomitant]
     Active Substance: BIPERIDEN
     Dosage: UNK
     Dates: start: 2011
  6. CINETOL [Concomitant]
     Dosage: UNK
  7. HALDOL [Concomitant]
     Active Substance: HALOPERIDOL
     Dosage: UNK
     Dates: start: 2011
  8. OLANZAPINE. [Concomitant]
     Active Substance: OLANZAPINE
     Dosage: UNK
     Dates: start: 2017

REACTIONS (9)
  - Depressed mood [Not Recovered/Not Resolved]
  - Chills [Recovered/Resolved]
  - Suicidal behaviour [Recovered/Resolved]
  - Vision blurred [Not Recovered/Not Resolved]
  - Hallucination, visual [Recovered/Resolved]
  - Hallucination, auditory [Not Recovered/Not Resolved]
  - Influenza [Not Recovered/Not Resolved]
  - Feeling of despair [Not Recovered/Not Resolved]
  - Memory impairment [Not Recovered/Not Resolved]

NARRATIVE: CASE EVENT DATE: 2017
